FAERS Safety Report 8086502-8 (Version None)
Quarter: 2012Q1

REPORT INFORMATION
  Report Type: 
  Country: None (occurrence: None)
  Receive Date: 20120128
  Receipt Date: 20110506
  Transmission Date: 20120608
  Serious: No
  Sender: FDA-Public Use
  Company Number: US-ABBOTT-11P-163-0724102-00

PATIENT
  Age: 55 Year
  Sex: Female

DRUGS (2)
  1. NASONEX [Concomitant]
     Indication: HYPERSENSITIVITY
     Route: 045
  2. HUMIRA [Suspect]
     Indication: PSORIASIS
     Dates: start: 20110401

REACTIONS (6)
  - INJECTION SITE HAEMORRHAGE [None]
  - INJECTION SITE PAIN [None]
  - DEVICE MALFUNCTION [None]
  - INCORRECT DOSE ADMINISTERED [None]
  - INJECTION SITE HAEMATOMA [None]
  - INJECTION SITE ERYTHEMA [None]
